FAERS Safety Report 21473274 (Version 1)
Quarter: 2022Q4

REPORT INFORMATION
  Report Type: Spontaneous
  Country: US (occurrence: None)
  Receive Date: 20221017
  Receipt Date: 20221017
  Transmission Date: 20230113
  Serious: No
  Sender: FDA-Public Use
  Company Number: None

PATIENT
  Age: 63 Year
  Sex: Female

DRUGS (1)
  1. PLEGRIDY [Suspect]
     Active Substance: PEGINTERFERON BETA-1A
     Indication: Multiple sclerosis
     Dosage: 125 MC EVERY 15 DAYS SQ?
     Route: 058
     Dates: start: 20210709

REACTIONS (2)
  - Device delivery system issue [None]
  - Product dose omission issue [None]

NARRATIVE: CASE EVENT DATE: 20221016
